FAERS Safety Report 8784843 (Version 1)
Quarter: 2012Q4

REPORT INFORMATION
  Report Type: 
  Country: LU (occurrence: LU)
  Receive Date: 20120914
  Receipt Date: 20120914
  Transmission Date: 20130627
  Serious: Yes (Death)
  Sender: FDA-Public Use
  Company Number: LU-B.I. PHARMACEUTICALS,INC./RIDGEFIELD-2012-BL-00500BL

PATIENT
  Age: 80 Year
  Sex: Male

DRUGS (1)
  1. PRADAXA [Suspect]
     Route: 048

REACTIONS (2)
  - Cerebral haemorrhage [Fatal]
  - Fall [Fatal]
